FAERS Safety Report 8446643-X (Version None)
Quarter: 2012Q2

REPORT INFORMATION
  Report Type: 
  Country: None (occurrence: None)
  Receive Date: 20120619
  Receipt Date: 20120611
  Transmission Date: 20120825
  Serious: No
  Sender: FDA-Public Use
  Company Number: US-BIOGENIDEC-2012BI007254

PATIENT
  Sex: Female

DRUGS (9)
  1. TYSABRI [Suspect]
     Route: 042
     Dates: start: 20120308
  2. PROGMAFRESIS [Concomitant]
     Indication: FATIGUE
  3. PROGMAFRESIS [Concomitant]
     Indication: HYPOAESTHESIA
  4. NOVANTRONE [Concomitant]
  5. PROGMAFRESIS [Concomitant]
     Indication: MUSCULAR WEAKNESS
  6. PROGMAFRESIS [Concomitant]
     Indication: FALL
  7. TYSABRI [Suspect]
     Indication: MULTIPLE SCLEROSIS
     Route: 042
     Dates: start: 20070710, end: 20100709
  8. PROGMAFRESIS [Concomitant]
     Indication: BURNING SENSATION
  9. CAMPATH WINDOWS [Concomitant]
     Indication: LEUKAEMIA

REACTIONS (5)
  - BLINDNESS [None]
  - MUSCULAR WEAKNESS [None]
  - MIGRAINE [None]
  - ABASIA [None]
  - VISUAL IMPAIRMENT [None]
